FAERS Safety Report 24772397 (Version 1)
Quarter: 2024Q4

REPORT INFORMATION
  Report Type: Report from Study
  Country: US (occurrence: US)
  Receive Date: 20241224
  Receipt Date: 20241224
  Transmission Date: 20250115
  Serious: Yes (Hospitalization, Other)
  Sender: GILEAD
  Company Number: US-GILEAD-2024-0697564

PATIENT
  Age: 14 Year
  Sex: Female
  Weight: 41.7 kg

DRUGS (12)
  1. AMBRISENTAN [Suspect]
     Active Substance: AMBRISENTAN
     Indication: Pulmonary arterial hypertension
     Dosage: 1 DOSAGE FORM
     Route: 065
  2. AMBRISENTAN [Suspect]
     Active Substance: AMBRISENTAN
     Dosage: 1/2 TABLET INSTEAD OF 1 FULL TABLET
     Route: 065
  3. REMODULIN [Suspect]
     Active Substance: TREPROSTINIL
     Indication: Pulmonary arterial hypertension
     Dosage: 0.099 UG/KG, CONTINUOUS
     Route: 058
     Dates: start: 20231228
  4. CLARITIN [Concomitant]
     Active Substance: LORATADINE
     Route: 065
  5. TADALAFIL [Concomitant]
     Active Substance: TADALAFIL
     Route: 065
  6. VITAMIN D3 [Concomitant]
     Active Substance: CHOLECALCIFEROL
     Route: 065
  7. OXYGEN [Concomitant]
     Active Substance: OXYGEN
     Route: 065
  8. LIDOCAINE [Concomitant]
     Active Substance: LIDOCAINE
     Route: 065
  9. ONDANSETRON HYDROCHLORIDE [Concomitant]
     Active Substance: ONDANSETRON HYDROCHLORIDE
     Route: 065
  10. FERROUS SULFATE [Concomitant]
     Active Substance: FERROUS SULFATE
     Route: 065
  11. MOTRIN IB [Concomitant]
     Active Substance: IBUPROFEN
     Route: 065
  12. VITAMIN C [Concomitant]
     Active Substance: ASCORBIC ACID
     Route: 065

REACTIONS (5)
  - Pulmonary hypertension [Unknown]
  - Dyspnoea [Unknown]
  - Swelling face [Unknown]
  - Product use issue [Not Recovered/Not Resolved]
  - Wrong technique in product usage process [Not Recovered/Not Resolved]
